FAERS Safety Report 11451443 (Version 1)
Quarter: 2015Q3

REPORT INFORMATION
  Report Type: Spontaneous
  Country: US (occurrence: US)
  Receive Date: 20150903
  Receipt Date: 20150903
  Transmission Date: 20151125
  Serious: No
  Sender: FDA-Public Use
  Company Number: US-ROCHE-1019624

PATIENT
  Sex: Female

DRUGS (3)
  1. INCIVEK [Suspect]
     Active Substance: TELAPREVIR
     Indication: CHRONIC HEPATITIS C
     Route: 065
     Dates: start: 20110930, end: 20111216
  2. PEGASYS [Suspect]
     Active Substance: PEGINTERFERON ALFA-2A
     Indication: CHRONIC HEPATITIS C
     Route: 058
     Dates: start: 20110930, end: 20120227
  3. COPEGUS [Suspect]
     Active Substance: RIBAVIRIN
     Indication: CHRONIC HEPATITIS C
     Route: 048
     Dates: start: 20110930, end: 20120227

REACTIONS (7)
  - Oedema [Unknown]
  - Decreased appetite [Unknown]
  - Pruritus generalised [Unknown]
  - Proctalgia [Unknown]
  - Vein disorder [Unknown]
  - Diarrhoea [Unknown]
  - Depression [Unknown]
